FAERS Safety Report 24079905 (Version 1)
Quarter: 2024Q3

REPORT INFORMATION
  Report Type: Spontaneous
  Country: US (occurrence: US)
  Receive Date: 20240711
  Receipt Date: 20240711
  Transmission Date: 20241016
  Serious: No
  Sender: GUERBET
  Company Number: US-GUERBET / LLC-US-20240074

PATIENT
  Age: 67 Year
  Sex: Female

DRUGS (1)
  1. DOTAREM [Suspect]
     Active Substance: GADOTERATE MEGLUMINE
     Indication: Product used for unknown indication
     Dates: start: 20240416, end: 20240416

REACTIONS (1)
  - Urticaria [Unknown]

NARRATIVE: CASE EVENT DATE: 20240416
